FAERS Safety Report 10514003 (Version 5)
Quarter: 2016Q2

REPORT INFORMATION
  Report Type: Spontaneous
  Country: US (occurrence: US)
  Receive Date: 20141013
  Receipt Date: 20160406
  Transmission Date: 20160815
  Serious: Yes (Other)
  Sender: FDA-Public Use
  Company Number: US-PFIZER INC-2014277462

PATIENT
  Age: 62 Year
  Sex: Female

DRUGS (31)
  1. TRICOR [Concomitant]
     Active Substance: FENOFIBRATE
     Dosage: 145 MG, DAILY
     Route: 048
  2. OSCAL D [Concomitant]
     Active Substance: CALCIUM CARBONATE\CHOLECALCIFEROL
     Dosage: UNK, DAILY
  3. NEURONTIN [Concomitant]
     Active Substance: GABAPENTIN
     Indication: DIABETIC NEUROPATHY
     Dosage: 300 MG, 3X/DAY
     Route: 048
  4. LOVENOX [Concomitant]
     Active Substance: ENOXAPARIN SODIUM
     Indication: DEEP VEIN THROMBOSIS
     Dosage: 30 MG, 2X/DAY
  5. BUMEX [Concomitant]
     Active Substance: BUMETANIDE
     Dosage: 1 MG, AS NEEDED
  6. JANUVIA [Concomitant]
     Active Substance: SITAGLIPTIN PHOSPHATE
     Dosage: 50 MG, DAILY
     Route: 048
  7. SYNTHROID [Concomitant]
     Active Substance: LEVOTHYROXINE SODIUM
     Dosage: 50 ?G, DAILY
     Route: 048
  8. SUTENT [Suspect]
     Active Substance: SUNITINIB MALATE
     Dosage: 50 MG,CYCLIC (DAILY FOR 2-WEEK ON, 1 WEEK OFF SCHEDULE)
     Route: 048
     Dates: start: 20141031
  9. ZOFRAN [Concomitant]
     Active Substance: ONDANSETRON HYDROCHLORIDE
     Dosage: 8 MG, AS NEEDED
     Dates: start: 20130117
  10. SUTENT [Suspect]
     Active Substance: SUNITINIB MALATE
     Dosage: 50 MG, DAILY
     Route: 048
     Dates: end: 20140802
  11. LISINOPRIL. [Concomitant]
     Active Substance: LISINOPRIL
     Dosage: 30 MG, DAILY
  12. PRANDIN [Concomitant]
     Active Substance: REPAGLINIDE
     Dosage: 0.5 MG, AS NEEDED
  13. VITAMIN B12 [Concomitant]
     Active Substance: CYANOCOBALAMIN
     Dosage: 1500 ?G, 2X/WEEK
  14. VITAMIN B12 [Concomitant]
     Active Substance: CYANOCOBALAMIN
     Dosage: 500 ?G, DAILY
  15. DITROPAN [Concomitant]
     Active Substance: OXYBUTYNIN CHLORIDE
     Dosage: 10 MG, 2X/DAY
     Route: 048
  16. ASPIRIN. [Concomitant]
     Active Substance: ASPIRIN
     Dosage: 81 MG, DAILY
  17. COREG [Concomitant]
     Active Substance: CARVEDILOL
     Indication: ESSENTIAL HYPERTENSION
     Dosage: UNK, 2X/DAY (12.5)
  18. LIPITOR [Concomitant]
     Active Substance: ATORVASTATIN CALCIUM
     Indication: HYPERLIPIDAEMIA
     Dosage: 40 MG, DAILY
     Route: 048
  19. INDAPAMIDE. [Concomitant]
     Active Substance: INDAPAMIDE
     Dosage: 12.5, 2X/DAY
  20. MAGNESIUM [Concomitant]
     Active Substance: MAGNESIUM
     Dosage: 500 MG, DAILY
     Route: 048
  21. MURO 128 [Concomitant]
     Active Substance: SODIUM CHLORIDE
     Dosage: 5 %, 1X/DAY
     Dates: start: 20120626
  22. XGEVA [Concomitant]
     Active Substance: DENOSUMAB
     Dosage: UNK, MONTHLY (120 MG/1.7 ML)
  23. SUTENT [Suspect]
     Active Substance: SUNITINIB MALATE
     Indication: METASTATIC RENAL CELL CARCINOMA
     Dosage: 50 MG, CYCLIC (4-WEEK ON, 2-WEEK OFF)
     Route: 048
     Dates: end: 2014
  24. JANUMET [Concomitant]
     Active Substance: METFORMIN HYDROCHLORIDE\SITAGLIPTIN PHOSPHATE
     Dosage: UNK, 2X/DAY (50/1000)
  25. VITAMIN D [Concomitant]
     Active Substance: CHOLECALCIFEROL
     Dosage: 2000 IU, DAILY
  26. CELEBREX [Concomitant]
     Active Substance: CELECOXIB
     Dosage: UNK
  27. PROTONIX [Concomitant]
     Active Substance: PANTOPRAZOLE SODIUM
     Dosage: 40 MG, 2X/DAY
  28. VITAMIN D3 [Concomitant]
     Active Substance: CHOLECALCIFEROL
     Dosage: 40000 IU, DAILY
     Route: 048
  29. LOVENOX [Concomitant]
     Active Substance: ENOXAPARIN SODIUM
     Indication: PULMONARY EMBOLISM
     Dosage: 40 UNK, UNK
     Route: 058
  30. CALTRATE 600 +D PLUS [Concomitant]
     Dosage: 1 DF, DAILY (600 MG CALTRATE; VIT D 400 MG)
     Route: 048
  31. XGENA [Concomitant]
     Dosage: UNK, MONTHLY

REACTIONS (13)
  - Deep vein thrombosis [Not Recovered/Not Resolved]
  - Cancer pain [Recovering/Resolving]
  - Gait disturbance [Recovered/Resolved]
  - Diarrhoea [Not Recovered/Not Resolved]
  - Haemoglobin decreased [Unknown]
  - Renal failure [Recovered/Resolved]
  - Disease progression [Unknown]
  - Arthropathy [Unknown]
  - Gastrointestinal haemorrhage [Recovered/Resolved]
  - Lymphoedema [Recovering/Resolving]
  - Hyperkalaemia [Unknown]
  - Metastatic renal cell carcinoma [Unknown]
  - Vitamin D deficiency [Recovering/Resolving]

NARRATIVE: CASE EVENT DATE: 201408
